FAERS Safety Report 5951669-1 (Version None)
Quarter: 2008Q4

REPORT INFORMATION
  Report Type: 
  Country: None (occurrence: None)
  Receive Date: 20081113
  Receipt Date: 20081111
  Transmission Date: 20090506
  Serious: Yes (Hospitalization, Other)
  Sender: FDA-Public Use
  Company Number: US-GENENTECH-265938

PATIENT
  Sex: Female
  Weight: 64.399 kg

DRUGS (4)
  1. HERCEPTIN [Suspect]
     Indication: BREAST CANCER
     Dosage: 392 MG, Q3W
     Route: 042
     Dates: start: 20080208, end: 20080805
  2. HERCEPTIN [Suspect]
     Dosage: UNK
     Dates: start: 20081006
  3. TAXOTERE [Concomitant]
     Indication: DRUG USE FOR UNKNOWN INDICATION
     Dosage: UNK
  4. ARIMIDEX [Concomitant]
     Indication: DRUG USE FOR UNKNOWN INDICATION
     Dosage: 1 MG, QD

REACTIONS (2)
  - HERPES ZOSTER [None]
  - MENINGITIS VIRAL [None]
